FAERS Safety Report 8782694 (Version 1)
Quarter: 2012Q4

REPORT INFORMATION
  Report Type: 
  Country: IT (occurrence: IT)
  Receive Date: 20120913
  Receipt Date: 20120913
  Transmission Date: 20130627
  Serious: Yes (Hospitalization)
  Sender: FDA-Public Use
  Company Number: IT-TEVA-349774ISR

PATIENT
  Age: 87 Year
  Sex: Female

DRUGS (4)
  1. LOSARTAN [Suspect]
     Indication: HYPERTENSION
     Dosage: 50 Milligram Daily;
     Route: 048
     Dates: start: 20110601, end: 20120608
  2. TORASEMIDE [Interacting]
     Indication: HYPERTENSION
     Dosage: 10 Milligram Daily;
     Route: 048
     Dates: start: 20120601, end: 20120608
  3. OKI [Interacting]
     Indication: HEADACHE
     Dosage: 80 Milligram Daily;
     Route: 048
     Dates: start: 20120530, end: 20120608
  4. ACTONEL [Concomitant]

REACTIONS (5)
  - Renal failure [Recovering/Resolving]
  - Drug interaction [Recovering/Resolving]
  - Renal artery stenosis [None]
  - Renal arteriosclerosis [None]
  - Aortic arteriosclerosis [None]
